FAERS Safety Report 6291669-8 (Version None)
Quarter: 2009Q3

REPORT INFORMATION
  Report Type: 
  Country: None (occurrence: None)
  Receive Date: 20090730
  Receipt Date: 20090722
  Transmission Date: 20100115
  Serious: Yes (Death)
  Sender: FDA-Public Use
  Company Number: US-ASTRAZENECA-2009UW19415

PATIENT
  Age: 51 Year
  Sex: Male
  Weight: 99.8 kg

DRUGS (9)
  1. SYMBICORT [Suspect]
     Indication: ASTHMA
     Route: 055
     Dates: start: 20080915
  2. SYMBICORT [Suspect]
     Indication: CHRONIC OBSTRUCTIVE PULMONARY DISEASE
     Route: 055
     Dates: start: 20080915
  3. ALVESCO [Suspect]
     Indication: ASTHMA
     Route: 055
     Dates: start: 20090403
  4. THEOPHYLLINE [Suspect]
     Indication: ASTHMA
     Dates: start: 20090113
  5. MAXAIR [Concomitant]
  6. ALBUTEROL [Concomitant]
  7. ACCOLATE [Concomitant]
     Indication: ASTHMA
     Dates: start: 20080404
  8. LIPITOR [Concomitant]
     Indication: HYPERCHOLESTEROLAEMIA
  9. XOLAIR [Concomitant]
     Indication: ASTHMA
     Dates: start: 20050725

REACTIONS (1)
  - MYOCARDIAL INFARCTION [None]
